FAERS Safety Report 10203282 (Version 1)
Quarter: 2014Q2

REPORT INFORMATION
  Report Type: Spontaneous
  Country: US (occurrence: US)
  Receive Date: 20140529
  Receipt Date: 20140529
  Transmission Date: 20141212
  Serious: Yes (Other)
  Sender: FDA-Public Use
  Company Number: US-ROCHE-1409156

PATIENT
  Sex: Female

DRUGS (3)
  1. XOLAIR [Suspect]
     Indication: ASTHMA
     Route: 065
  2. SINGULAR [Concomitant]
  3. LIPITOR [Concomitant]

REACTIONS (3)
  - Glaucoma [Unknown]
  - Optic nerve disorder [Unknown]
  - Asthma [Unknown]
